FAERS Safety Report 16156457 (Version 6)
Quarter: 2019Q4

REPORT INFORMATION
  Report Type: Report from Study
  Country: US (occurrence: US)
  Receive Date: 20190404
  Receipt Date: 20191218
  Transmission Date: 20200122
  Serious: Yes (Death, Other)
  Sender: FDA-Public Use
  Company Number: PHHY2019US074559

PATIENT
  Age: 17 Year
  Sex: Male

DRUGS (3)
  1. FLUDARABINE [Concomitant]
     Active Substance: FLUDARABINE PHOSPHATE
     Indication: CHEMOTHERAPY
     Route: 065
  2. CYCLOPHOSPHAMIDE. [Concomitant]
     Active Substance: CYCLOPHOSPHAMIDE
     Indication: CHEMOTHERAPY
     Route: 065
  3. KYMRIAH [Suspect]
     Active Substance: TISAGENLECLEUCEL
     Indication: B-CELL TYPE ACUTE LEUKAEMIA
     Dosage: UNK, ONCE/SINGLE
     Route: 041
     Dates: start: 2018

REACTIONS (15)
  - Escherichia infection [Unknown]
  - Acute graft versus host disease [Fatal]
  - Depressed level of consciousness [Unknown]
  - Clostridial infection [Unknown]
  - Adenovirus infection [Unknown]
  - Gastrointestinal bacterial infection [Unknown]
  - Treatment failure [Unknown]
  - Osteomyelitis [Unknown]
  - Clostridium difficile infection [Unknown]
  - Astrovirus test positive [Unknown]
  - Viral sinusitis [Unknown]
  - Cytopenia [Unknown]
  - Urinary tract infection [Unknown]
  - Gastrointestinal viral infection [Unknown]
  - Upper respiratory tract infection [Unknown]
